FAERS Safety Report 5948001-6 (Version None)
Quarter: 2008Q4

REPORT INFORMATION
  Report Type: 
  Country: None (occurrence: None)
  Receive Date: 20081111
  Receipt Date: 20081031
  Transmission Date: 20090506
  Serious: No
  Sender: FDA-Public Use
  Company Number: US-BAYER-200837548NA

PATIENT
  Sex: Female

DRUGS (1)
  1. MIRENA [Suspect]
     Indication: CONTRACEPTION
     Route: 015
     Dates: start: 20050718, end: 20081031

REACTIONS (4)
  - ABDOMINAL PAIN LOWER [None]
  - AMENORRHOEA [None]
  - BREAST TENDERNESS [None]
  - PREGNANCY WITH CONTRACEPTIVE DEVICE [None]
